FAERS Safety Report 8414218-4 (Version None)
Quarter: 2012Q2

REPORT INFORMATION
  Report Type: 
  Country: None (occurrence: None)
  Receive Date: 20120605
  Receipt Date: 20120523
  Transmission Date: 20120825
  Serious: No
  Sender: FDA-Public Use
  Company Number: US-ASTRAZENECA-2012SE26517

PATIENT
  Age: 57 Year
  Sex: Male

DRUGS (2)
  1. NEXIUM [Suspect]
     Indication: GASTROOESOPHAGEAL REFLUX DISEASE
     Route: 048
  2. SYMBICORT [Suspect]
     Indication: DYSPNOEA PAROXYSMAL NOCTURNAL
     Dosage: 80/4.5 MCG ONE PUFF TWICE A DAY
     Route: 055

REACTIONS (5)
  - DRUG PRESCRIBING ERROR [None]
  - OFF LABEL USE [None]
  - DRUG DOSE OMISSION [None]
  - NASAL CONGESTION [None]
  - DEVICE MISUSE [None]
